FAERS Safety Report 7884401 (Version 3)
Quarter: 2015Q3

REPORT INFORMATION
  Report Type: Spontaneous
  Country: US (occurrence: US)
  Receive Date: 20110404
  Receipt Date: 20150720
  Transmission Date: 20151125
  Serious: Yes (Hospitalization, Disabling, Other)
  Sender: FDA-Public Use
  Company Number: US-ASTRAZENECA-2010SE33982

PATIENT
  Age: 68 Year
  Sex: Female

DRUGS (3)
  1. NEXIUM [Suspect]
     Active Substance: ESOMEPRAZOLE MAGNESIUM
     Indication: GASTRITIS
     Route: 048
  2. CRESTOR [Suspect]
     Active Substance: ROSUVASTATIN CALCIUM
     Route: 048
  3. GENERIC ZOCOR [Concomitant]

REACTIONS (6)
  - Parkinson^s disease [Unknown]
  - Cerebrovascular accident [Recovered/Resolved with Sequelae]
  - Pneumonia [Unknown]
  - Amnesia [Unknown]
  - Dyspepsia [Unknown]
  - Influenza [Not Recovered/Not Resolved]

NARRATIVE: CASE EVENT DATE: 20100707
